FAERS Safety Report 8604521-7 (Version None)
Quarter: 2012Q3

REPORT INFORMATION
  Report Type: 
  Country: None (occurrence: None)
  Receive Date: 20120820
  Receipt Date: 20120814
  Transmission Date: 20120928
  Serious: No
  Sender: FDA-Public Use
  Company Number: US-B.I. PHARMACEUTICALS,INC./RIDGEFIELD-2012-BP-19257BP

PATIENT
  Age: 81 Year
  Sex: Female
  Weight: 74 kg

DRUGS (8)
  1. TRIAMTERENE [Concomitant]
     Indication: URINARY INCONTINENCE
     Route: 048
     Dates: start: 20120801
  2. LOSARTAN POTASSIUM [Concomitant]
     Indication: BLOOD PRESSURE ABNORMAL
     Dosage: 25 MG
     Route: 048
     Dates: start: 20120201
  3. PRADAXA [Suspect]
     Indication: ATRIAL FIBRILLATION
     Dosage: 300 MG
     Route: 048
     Dates: start: 20120701
  4. COQ10 [Concomitant]
     Indication: ENZYME SUPPLEMENTATION
     Route: 048
     Dates: start: 20100101
  5. ASPIRIN [Concomitant]
     Indication: BLOOD PRESSURE ABNORMAL
     Dosage: 81 MG
     Route: 048
     Dates: start: 19920101
  6. ATENOLOL [Concomitant]
     Indication: BLOOD PRESSURE ABNORMAL
     Dosage: 50 MG
     Route: 048
     Dates: start: 19920101
  7. ZEGERID [Concomitant]
     Indication: ABDOMINAL DISCOMFORT
     Route: 048
     Dates: start: 20070101
  8. VITAMIN B-12 [Concomitant]
     Indication: VITAMIN SUPPLEMENTATION
     Route: 048
     Dates: start: 20120801

REACTIONS (3)
  - URINE ODOUR ABNORMAL [None]
  - FLATULENCE [None]
  - INCREASED TENDENCY TO BRUISE [None]
